FAERS Safety Report 4436152-7 (Version None)
Quarter: 2004Q3

REPORT INFORMATION
  Report Type: 
  Country: None (occurrence: None)
  Receive Date: 20040830
  Receipt Date: 20040823
  Transmission Date: 20050211
  Serious: Yes (Other)
  Sender: FDA-Public Use
  Company Number: US-JNJFOC-20040401330

PATIENT
  Sex: Male
  Weight: 108.86 kg

DRUGS (10)
  1. REMICADE [Suspect]
     Dosage: RESTARTED IN MAY-04
     Route: 042
  2. REMICADE [Suspect]
     Indication: RHEUMATOID ARTHRITIS
     Dosage: 500/600 MG
     Route: 042
  3. HUMIRA [Suspect]
     Indication: RHEUMATOID ARTHRITIS
  4. METHOTREXATE [Concomitant]
  5. INDOCIN [Concomitant]
     Indication: SWELLING
  6. FOLIC ACID [Concomitant]
  7. CALCIUM WITH D [Concomitant]
  8. CALCIUM WITH D [Concomitant]
  9. CALCIUM WITH D [Concomitant]
  10. FOSAMAX [Concomitant]

REACTIONS (5)
  - ARTERITIS [None]
  - DRUG INEFFECTIVE [None]
  - EAR INFECTION [None]
  - RHEUMATOID ARTHRITIS [None]
  - SINUSITIS [None]
